FAERS Safety Report 18997184 (Version 1)
Quarter: 2021Q1

REPORT INFORMATION
  Report Type: Spontaneous
  Country: US (occurrence: US)
  Receive Date: 20210311
  Receipt Date: 20210311
  Transmission Date: 20210420
  Serious: Yes (Life-Threatening)
  Sender: FDA-Public Use
  Company Number: None

PATIENT
  Age: 78 Year
  Sex: Female
  Weight: 99.9 kg

DRUGS (1)
  1. CASIRIVIMAB AND IMDEVIMAB (REG?COV2) MAB INFUSION [Suspect]
     Active Substance: CASIRIVIMAB\IMDEVIMAB
     Indication: COVID-19
     Dosage: ?          OTHER FREQUENCY:ONCE;?
     Route: 041
     Dates: start: 20210205, end: 20210205

REACTIONS (6)
  - Nausea [None]
  - Vomiting [None]
  - Gastric perforation [None]
  - Septic shock [None]
  - Abdominal pain [None]
  - Pneumoperitoneum [None]

NARRATIVE: CASE EVENT DATE: 20210307
